FAERS Safety Report 10371668 (Version 1)
Quarter: 2014Q3

REPORT INFORMATION
  Report Type: Spontaneous
  Country: US (occurrence: None)
  Receive Date: 20140807
  Receipt Date: 20140807
  Transmission Date: 20150326
  Serious: Yes (Disabling)
  Sender: FDA-Public Use
  Company Number: None

PATIENT
  Age: 63 Year
  Sex: Male
  Weight: 79.38 kg

DRUGS (8)
  1. MINOXIDIL. [Concomitant]
     Active Substance: MINOXIDIL
  2. ACYCLOVIR. [Concomitant]
     Active Substance: ACYCLOVIR
  3. PROPECIA [Concomitant]
     Active Substance: FINASTERIDE
  4. IMBRUVICA [Suspect]
     Active Substance: IBRUTINIB
     Indication: CHRONIC LYMPHOCYTIC LEUKAEMIA
     Dosage: 3 PILLS DAILY  ONCE DAILY ORAL
     Route: 048
     Dates: start: 20140215
  5. BACTRIM [Concomitant]
     Active Substance: SULFAMETHOXAZOLE\TRIMETHOPRIM
  6. IVIG [Concomitant]
     Active Substance: HUMAN IMMUNOGLOBULIN G
  7. POTASSIUM [Concomitant]
     Active Substance: POTASSIUM
  8. MULTI-VITAMIN [Concomitant]
     Active Substance: .ALPHA.-TOCOPHEROL ACETATE, DL-\ASCORBIC ACID\CYANOCOBALAMIN\FLUORIDE ION\FOLIC ACID\NIACIN\PYRIDOXINE\RIBOFLAVIN\THIAMINE\VITAMIN A\VITAMIN D

REACTIONS (1)
  - Cataract [None]

NARRATIVE: CASE EVENT DATE: 20140601
